FAERS Safety Report 24555142 (Version 1)
Quarter: 2024Q4

REPORT INFORMATION
  Report Type: Spontaneous
  Country: GB (occurrence: GB)
  Receive Date: 20241028
  Receipt Date: 20241028
  Transmission Date: 20250114
  Serious: Yes (Other)
  Sender: RANBAXY
  Company Number: GB-SUN PHARMACEUTICAL INDUSTRIES LTD-2024RR-475041

PATIENT
  Age: 87 Year
  Sex: Female
  Weight: 94 kg

DRUGS (4)
  1. DONEPEZIL [Suspect]
     Active Substance: DONEPEZIL
     Indication: Adverse drug reaction
     Dosage: ONE TO BE TAKEN AT NIGHT
     Route: 065
     Dates: start: 20240924
  2. BISOPROLOL [Concomitant]
     Active Substance: BISOPROLOL\BISOPROLOL FUMARATE
     Indication: Product used for unknown indication
     Dosage: 2.5 MILLIGRAM
     Route: 065
  3. DONEPEZIL [Concomitant]
     Active Substance: DONEPEZIL
     Indication: Adverse drug reaction
     Dosage: ONE TO BE TAKEN AT NIGHT FOR FIRST MONTH THEN UP TO 10MG AT NIGHT IF TOLERATED
     Route: 065
     Dates: start: 20240820, end: 20241002
  4. DONEPEZIL [Concomitant]
     Active Substance: DONEPEZIL
     Dosage: ONE TO BE TAKEN AT NIGHT FOR FIRST MONTH THEN UP TO 10MG AT NIGHT IF TOLERATED
     Route: 065
     Dates: start: 20240820

REACTIONS (2)
  - Syncope [Unknown]
  - Bradycardia [Recovered/Resolved]

NARRATIVE: CASE EVENT DATE: 20241001
